FAERS Safety Report 21000507 (Version 1)
Quarter: 2022Q2

REPORT INFORMATION
  Report Type: 
  Country: None (occurrence: None)
  Receive Date: 20220623
  Receipt Date: 20220623
  Transmission Date: 20220721
  Serious: Yes (Other)
  Sender: FDA-Public Use
  Company Number: None

PATIENT
  Sex: Female

DRUGS (1)
  1. ZIOPTAN [Suspect]
     Active Substance: TAFLUPROST

REACTIONS (3)
  - Intraocular pressure increased [Not Recovered/Not Resolved]
  - Cataract operation [Recovered/Resolved]
  - Drug ineffective [Not Recovered/Not Resolved]
